FAERS Safety Report 16754497 (Version 1)
Quarter: 2019Q3

REPORT INFORMATION
  Report Type: Report from Study
  Country: CO (occurrence: CO)
  Receive Date: 20190829
  Receipt Date: 20190829
  Transmission Date: 20191005
  Serious: Yes (Hospitalization)
  Sender: FDA-Public Use
  Company Number: PHHY2019CO199118

PATIENT
  Sex: Female

DRUGS (2)
  1. JADENU [Suspect]
     Active Substance: DEFERASIROX
     Indication: IRON OVERLOAD
     Dosage: 360 MG, UNK
     Route: 048
  2. JADENU [Suspect]
     Active Substance: DEFERASIROX
     Indication: THALASSAEMIA

REACTIONS (1)
  - Urinary tract infection [Unknown]
